FAERS Safety Report 15325026 (Version 1)
Quarter: 2018Q3

REPORT INFORMATION
  Report Type: Spontaneous
  Country: US (occurrence: US)
  Receive Date: 20180817
  Receipt Date: 20180817
  Transmission Date: 20181010
  Serious: Yes (Disabling)
  Sender: FDA-Public Use
  Company Number: None

PATIENT
  Age: 60 Year
  Sex: Male
  Weight: 72.57 kg

DRUGS (10)
  1. VITAMIN D [Concomitant]
     Active Substance: CHOLECALCIFEROL
  2. ^GADOLINIUM^ BASE CONTRAST AGENT USED IN MRI^S [Suspect]
     Active Substance: GADOLINIUM
  3. TIZANIDINE. [Concomitant]
     Active Substance: TIZANIDINE
  4. TRAZODONE [Concomitant]
     Active Substance: TRAZODONE HYDROCHLORIDE
  5. VITAMIN D [Concomitant]
     Active Substance: CHOLECALCIFEROL
  6. MS CONTIN [Concomitant]
     Active Substance: MORPHINE SULFATE
  7. MORPHINE SULFATE. [Concomitant]
     Active Substance: MORPHINE SULFATE
  8. MATURE MULTI VITAMIN [Concomitant]
  9. LISINOPRIL. [Concomitant]
     Active Substance: LISINOPRIL
  10. GABAPENTIN. [Concomitant]
     Active Substance: GABAPENTIN

REACTIONS (12)
  - Vision blurred [None]
  - Bone pain [None]
  - Headache [None]
  - Insomnia [None]
  - Hyperaesthesia [None]
  - Contrast media reaction [None]
  - Mobility decreased [None]
  - Cognitive disorder [None]
  - Nausea [None]
  - Burning sensation [None]
  - Myalgia [None]
  - Memory impairment [None]

NARRATIVE: CASE EVENT DATE: 20050101
